FAERS Safety Report 14836338 (Version 1)
Quarter: 2018Q2

REPORT INFORMATION
  Report Type: Spontaneous
  Country: FR (occurrence: FR)
  Receive Date: 20180502
  Receipt Date: 20180502
  Transmission Date: 20180711
  Serious: Yes (Other)
  Sender: FDA-Public Use
  Company Number: FR-APOTEX-2018AP011839

PATIENT
  Age: 53 Year
  Sex: Female

DRUGS (2)
  1. PAROXETINE TABLET [Suspect]
     Active Substance: PAROXETINE
     Dosage: 20 MG, QD
     Route: 048
     Dates: start: 20170626, end: 20180125
  2. VENLAFAXINE [Suspect]
     Active Substance: VENLAFAXINE HYDROCHLORIDE
     Indication: DEPRESSION
     Dosage: 75 MG, QD
     Route: 048
     Dates: start: 20180126

REACTIONS (1)
  - Upper gastrointestinal haemorrhage [Not Recovered/Not Resolved]
